FAERS Safety Report 6269185-9 (Version None)
Quarter: 2009Q3

REPORT INFORMATION
  Report Type: 
  Country: None (occurrence: None)
  Receive Date: 20090713
  Receipt Date: 20070720
  Transmission Date: 20100115
  Serious: Yes (Life-Threatening)
  Sender: FDA-Public Use
  Company Number: FR-GUERBET-20070138

PATIENT
  Age: 48 Year
  Sex: Male

DRUGS (1)
  1. HEXABRIX [Suspect]
     Indication: SPINAL MYELOGRAM
     Route: 037
     Dates: start: 20070720, end: 20070720

REACTIONS (3)
  - OFF LABEL USE [None]
  - STATUS EPILEPTICUS [None]
  - WRONG DRUG ADMINISTERED [None]
